FAERS Safety Report 24269983 (Version 2)
Quarter: 2024Q3

REPORT INFORMATION
  Report Type: Spontaneous
  Country: AT (occurrence: AT)
  Receive Date: 20240830
  Receipt Date: 20240909
  Transmission Date: 20241016
  Serious: No
  Sender: BAYER
  Company Number: AT-BAYER-2024A122299

PATIENT
  Age: 73 Year

DRUGS (2)
  1. STIVARGA [Suspect]
     Active Substance: REGORAFENIB MONOHYDRATE
     Indication: Chondroblastoma
     Dosage: UNK
  2. STIVARGA [Suspect]
     Active Substance: REGORAFENIB MONOHYDRATE
     Indication: Osteosarcoma

REACTIONS (1)
  - Off label use [None]
